FAERS Safety Report 16688112 (Version 5)
Quarter: 2019Q4

REPORT INFORMATION
  Report Type: Report from Study
  Country: None (occurrence: TR)
  Receive Date: 20190809
  Receipt Date: 20191116
  Transmission Date: 20200122
  Serious: Yes (Death, Hospitalization)
  Sender: FDA-Public Use
  Company Number: TR-ABBVIE-19K-161-2881032-00

PATIENT
  Age: 63 Year
  Sex: Female
  Weight: 125 kg

DRUGS (7)
  1. DUODOPA [Suspect]
     Active Substance: CARBIDOPA\LEVODOPA
     Indication: PARKINSON^S DISEASE
     Dosage: MORNING DOSE (ML): 3.00 CONTINUOUS DOSE (ML): 2.80 EXTRA DOSE (ML): 1.00
     Route: 050
     Dates: start: 20170724, end: 20190806
  2. DUODOPA [Suspect]
     Active Substance: CARBIDOPA\LEVODOPA
     Dosage: MORNING DOSE (ML): 3.00  CONTINUOUS DOSE (ML): 3.40 EXTRA DOSE (ML): 1.00
     Route: 050
     Dates: start: 20190806, end: 20191002
  3. GYREX [Concomitant]
     Indication: PARKINSON^S DISEASE
     Route: 048
     Dates: end: 201909
  4. GYREX [Concomitant]
     Indication: HALLUCINATION
  5. TRIVASTAL [Concomitant]
     Active Substance: PIRIBEDIL
     Indication: PARKINSON^S DISEASE
     Route: 048
  6. NEURONTIN [Concomitant]
     Active Substance: GABAPENTIN
     Indication: NEURALGIA
     Route: 048
  7. VASOCARD [Concomitant]
     Active Substance: AMLODIPINE BESYLATE
     Indication: PROPHYLAXIS
     Route: 048

REACTIONS (6)
  - Cardiac arrest [Fatal]
  - Tachycardia [Fatal]
  - Hallucination [Unknown]
  - Respiratory distress [Fatal]
  - Tremor [Recovered/Resolved]
  - Abdominal pain upper [Unknown]

NARRATIVE: CASE EVENT DATE: 2019
